FAERS Safety Report 26126115 (Version 1)
Quarter: 2025Q4

REPORT INFORMATION
  Report Type: Spontaneous
  Country: US (occurrence: US)
  Receive Date: 20251205
  Receipt Date: 20251205
  Transmission Date: 20260117
  Serious: No
  Sender: BAYER HEALTHCARE LLC
  Company Number: US-BAYER-2025A160472

PATIENT
  Age: 28 Year
  Sex: Female

DRUGS (1)
  1. MIRALAX [Suspect]
     Active Substance: POLYETHYLENE GLYCOL 3350
     Indication: Gastrointestinal disorder
     Dosage: MIXED ONE PACKET WITH WATER
     Route: 048
     Dates: start: 20251119, end: 20251121

REACTIONS (3)
  - Urticaria [Recovered/Resolved with Sequelae]
  - Rash [Recovered/Resolved with Sequelae]
  - Expired product administered [Recovered/Resolved with Sequelae]

NARRATIVE: CASE EVENT DATE: 20251119
